FAERS Safety Report 24128807 (Version 2)
Quarter: 2024Q4

REPORT INFORMATION
  Report Type: Spontaneous
  Country: US (occurrence: US)
  Receive Date: 20240723
  Receipt Date: 20241021
  Transmission Date: 20250114
  Serious: Yes (Other)
  Sender: BRISTOL-MYERS SQUIBB COMPANY
  Company Number: US-BRISTOL-MYERS SQUIBB COMPANY-2024-113848

PATIENT
  Age: 86 Year
  Sex: Male
  Weight: 80.29 kg

DRUGS (1)
  1. YERVOY [Suspect]
     Active Substance: IPILIMUMAB
     Indication: Squamous cell carcinoma of skin
     Dosage: DOSE : 90 MG;     FREQ : EVERY 6 WEEKS
     Route: 042
     Dates: start: 20240129

REACTIONS (2)
  - Malignant neoplasm progression [Unknown]
  - Off label use [Unknown]
